FAERS Safety Report 5145240-1 (Version None)
Quarter: 2006Q4

REPORT INFORMATION
  Report Type: 
  Country: None (occurrence: None)
  Receive Date: 20060914
  Receipt Date: 20060726
  Transmission Date: 20070319
  Serious: Yes (Hospitalization)
  Sender: FDA-Public Use
  Company Number: 0206027

PATIENT
  Age: 78 Year
  Sex: Female
  Weight: 86.1834 kg

DRUGS (1)
  1. DEPODUR [Suspect]
     Indication: PROCEDURAL PAIN
     Dosage: 10 MG (ONCE),EPIDURAL
     Route: 008
     Dates: start: 20060724, end: 20060724

REACTIONS (2)
  - BLOOD PRESSURE DECREASED [None]
  - RESPIRATORY DEPRESSION [None]
